FAERS Safety Report 4785078-8 (Version None)
Quarter: 2005Q3

REPORT INFORMATION
  Report Type: 
  Country: None (occurrence: None)
  Receive Date: 20050930
  Receipt Date: 20050920
  Transmission Date: 20060218
  Serious: Yes (Death, Other)
  Sender: FDA-Public Use
  Company Number: US-JNJFOC-20040502832

PATIENT
  Sex: Female
  Weight: 55 kg

DRUGS (15)
  1. DURAGESIC-100 [Suspect]
     Route: 062
  2. DURAGESIC-100 [Suspect]
     Route: 062
  3. DURAGESIC-100 [Suspect]
     Route: 062
  4. DURAGESIC-100 [Suspect]
     Route: 062
  5. NEURONTIN [Suspect]
  6. EFFEXOR [Suspect]
     Indication: DEPRESSION
  7. ATENOLOL [Concomitant]
  8. LORAZEPAM [Concomitant]
  9. FLEXERIL [Concomitant]
  10. BEXTRA [Concomitant]
  11. TEMAZEPAM [Concomitant]
  12. TOPAMAX [Concomitant]
  13. AMBIEN [Concomitant]
  14. ZYBAN [Concomitant]
  15. OXYCONTIN [Concomitant]
     Route: 048

REACTIONS (24)
  - ASPIRATION [None]
  - BLOOD URINE PRESENT [None]
  - BURN INFECTION [None]
  - CARDIO-RESPIRATORY ARREST [None]
  - COMA [None]
  - COMPLETED SUICIDE [None]
  - DIZZINESS [None]
  - DRUG TOXICITY [None]
  - FALL [None]
  - HAEMATEMESIS [None]
  - HEADACHE [None]
  - INSOMNIA [None]
  - MUSCLE SPASMS [None]
  - NARCOTIC INTOXICATION [None]
  - PAIN [None]
  - PETECHIAE [None]
  - POOR QUALITY DRUG ADMINISTERED [None]
  - POSTOPERATIVE INFECTION [None]
  - PRECANCEROUS CELLS PRESENT [None]
  - RASH [None]
  - SINUS HEADACHE [None]
  - SUICIDE ATTEMPT [None]
  - ULNAR NERVE INJURY [None]
  - UPPER RESPIRATORY TRACT INFECTION [None]
